FAERS Safety Report 6369033-2 (Version None)
Quarter: 2009Q3

REPORT INFORMATION
  Report Type: 
  Country: None (occurrence: None)
  Receive Date: 20090922
  Receipt Date: 20090908
  Transmission Date: 20100115
  Serious: Yes (Other)
  Sender: FDA-Public Use
  Company Number: PHHY2009DE38338

PATIENT
  Age: 71 Year
  Sex: Male

DRUGS (3)
  1. PROLEUKIN [Suspect]
     Indication: METASTASES TO SKIN
     Dosage: UNK
  2. DIPHENYLCYCLOPROPENONE [Concomitant]
     Indication: METASTASES TO SKIN
     Dosage: UNK
  3. DACARBAZINE [Concomitant]
     Indication: METASTASES TO SKIN
     Dosage: UNK

REACTIONS (2)
  - INFLAMMATION [None]
  - SKIN ULCER [None]
